FAERS Safety Report 6957788-5 (Version None)
Quarter: 2010Q3

REPORT INFORMATION
  Report Type: 
  Country: None (occurrence: None)
  Receive Date: 20100830
  Receipt Date: 20100830
  Transmission Date: 20110219
  Serious: Yes (Hospitalization)
  Sender: FDA-Public Use
  Company Number: None

PATIENT
  Age: 56 Year
  Sex: Male
  Weight: 54.4316 kg

DRUGS (12)
  1. SARGRAMOSTIM 500 MCG/1CC GENZYME [Suspect]
     Indication: NEUTROPENIA
     Dosage: 400 MCG DAYS 3-13 SQ
     Route: 058
     Dates: start: 20100722, end: 20100801
  2. DEMORAL [Concomitant]
  3. MORPHINE SULFATE [Concomitant]
  4. DILAUDID [Concomitant]
  5. PROTONIX [Concomitant]
  6. ENTECAVIR [Concomitant]
  7. ZOFRAN [Concomitant]
  8. COLACE [Concomitant]
  9. DULCOLAX [Concomitant]
  10. VICODIN [Concomitant]
  11. BENADRYL [Concomitant]
  12. RESTORIL [Concomitant]

REACTIONS (2)
  - DRUG EFFECT DECREASED [None]
  - RASH [None]
